FAERS Safety Report 11664460 (Version 1)
Quarter: 2015Q4

REPORT INFORMATION
  Report Type: Spontaneous
  Country: US (occurrence: US)
  Receive Date: 20151027
  Receipt Date: 20151027
  Transmission Date: 20160304
  Serious: No
  Sender: FDA-Public Use
  Company Number: US-ELI_LILLY_AND_COMPANY-US200912000503

PATIENT
  Sex: Female

DRUGS (2)
  1. FORTEO [Suspect]
     Active Substance: TERIPARATIDE
     Dates: start: 2009
  2. FORTEO [Suspect]
     Active Substance: TERIPARATIDE
     Indication: OSTEOPOROSIS
     Dosage: UNK, UNK
     Dates: start: 200908, end: 2009

REACTIONS (11)
  - Flatulence [Unknown]
  - Cough [Not Recovered/Not Resolved]
  - Pain in jaw [Unknown]
  - Oropharyngeal pain [Not Recovered/Not Resolved]
  - Myalgia [Recovered/Resolved]
  - Abdominal pain upper [Not Recovered/Not Resolved]
  - Arthralgia [Unknown]
  - Pain in extremity [Unknown]
  - Gastritis [Unknown]
  - Burning sensation [Unknown]
  - Motion sickness [Unknown]

NARRATIVE: CASE EVENT DATE: 2009
